FAERS Safety Report 19215171 (Version 2)
Quarter: 2021Q3

REPORT INFORMATION
  Report Type: Spontaneous
  Country: US (occurrence: US)
  Receive Date: 20210504
  Receipt Date: 20210819
  Transmission Date: 20211014
  Serious: Yes (Other)
  Sender: FDA-Public Use
  Company Number: US-GILEAD-2021-0527872

PATIENT
  Age: 63 Year
  Sex: Male
  Weight: 113.38 kg

DRUGS (9)
  1. TRUVADA [Suspect]
     Active Substance: EMTRICITABINE\TENOFOVIR DISOPROXIL FUMARATE
     Indication: HIV INFECTION
     Dosage: UNK
     Route: 048
     Dates: start: 2004, end: 202009
  2. TYLENOL [Concomitant]
     Active Substance: ACETAMINOPHEN
  3. IBUPROFEN. [Concomitant]
     Active Substance: IBUPROFEN
  4. DESCOVY [Concomitant]
     Active Substance: EMTRICITABINE\TENOFOVIR ALAFENAMIDE FUMARATE
  5. REYATAZ [Concomitant]
     Active Substance: ATAZANAVIR SULFATE
  6. HARVONI [Concomitant]
     Active Substance: LEDIPASVIR\SOFOSBUVIR
  7. SUSTIVA [Concomitant]
     Active Substance: EFAVIRENZ
  8. NORVIR [Concomitant]
     Active Substance: RITONAVIR
  9. CALCIUM [Concomitant]
     Active Substance: CALCIUM

REACTIONS (10)
  - Insomnia [Unknown]
  - Emotional distress [Not Recovered/Not Resolved]
  - Dyspareunia [Unknown]
  - Osteoporosis [Not Recovered/Not Resolved]
  - Spinal fracture [Not Recovered/Not Resolved]
  - Pain [Not Recovered/Not Resolved]
  - Physical disability [Unknown]
  - Anhedonia [Not Recovered/Not Resolved]
  - Gait disturbance [Unknown]
  - Anxiety [Not Recovered/Not Resolved]

NARRATIVE: CASE EVENT DATE: 20190614
